FAERS Safety Report 9298310 (Version 1)
Quarter: 2013Q2

REPORT INFORMATION
  Report Type: Spontaneous
  Country: US (occurrence: US)
  Receive Date: 20130520
  Receipt Date: 20130520
  Transmission Date: 20140414
  Serious: Yes (Hospitalization, Other)
  Sender: FDA-Public Use
  Company Number: US-SANOFI-AVENTIS-2013SA050163

PATIENT
  Sex: Male

DRUGS (1)
  1. LANTUS [Suspect]
     Indication: PRODUCT USED FOR UNKNOWN INDICATION
     Dosage: THERAPY START DATE - ABOUT 5 YEARS
     Route: 058

REACTIONS (4)
  - Amputation [Unknown]
  - Cognitive disorder [Unknown]
  - Dementia [Unknown]
  - Visual impairment [Unknown]
